FAERS Safety Report 4580431-X (Version None)
Quarter: 2005Q1

REPORT INFORMATION
  Report Type: 
  Country: None (occurrence: None)
  Receive Date: 20050214
  Receipt Date: 20040122
  Transmission Date: 20050727
  Serious: Yes (Other)
  Sender: FDA-Public Use
  Company Number: US-GLAXOSMITHKLINE-A0494707A

PATIENT
  Age: 57 Year
  Sex: Male

DRUGS (4)
  1. LAMICTAL [Suspect]
     Indication: BIPOLAR DISORDER
     Dosage: 300MG VARIABLE DOSE
     Route: 048
     Dates: start: 20020401, end: 20040203
  2. LOTREL [Concomitant]
  3. ZOCOR [Concomitant]
  4. PAXIL CR [Concomitant]
     Dosage: 25MG AT NIGHT
     Route: 048
     Dates: start: 20030701

REACTIONS (5)
  - DRY SKIN [None]
  - PRURITUS [None]
  - RASH MACULO-PAPULAR [None]
  - RASH VESICULAR [None]
  - STEVENS-JOHNSON SYNDROME [None]
